FAERS Safety Report 6588044-5 (Version None)
Quarter: 2010Q1

REPORT INFORMATION
  Report Type: 
  Country: None (occurrence: None)
  Receive Date: 20100218
  Receipt Date: 20100207
  Transmission Date: 20100710
  Serious: Yes (Hospitalization, Congenital Anomaly)
  Sender: FDA-Public Use
  Company Number: JP-AMGEN-US385384

PATIENT
  Age: 74 Year
  Sex: Male
  Weight: 67 kg

DRUGS (10)
  1. ENBREL [Suspect]
     Indication: RHEUMATOID ARTHRITIS
     Route: 058
     Dates: start: 20080917
  2. MOBIC [Suspect]
     Indication: RHEUMATOID ARTHRITIS
     Route: 048
     Dates: start: 20080817
  3. LOXONIN [Suspect]
     Indication: RHEUMATOID ARTHRITIS
     Route: 048
     Dates: start: 20080801
  4. GLAKAY [Suspect]
     Indication: OSTEOPOROSIS PROPHYLAXIS
     Route: 048
     Dates: start: 20080801
  5. PARIET [Suspect]
     Indication: PROPHYLAXIS AGAINST GASTROINTESTINAL ULCER
     Route: 048
     Dates: start: 20080801
  6. PREDNISOLONE [Suspect]
     Indication: RHEUMATOID ARTHRITIS
     Route: 048
     Dates: start: 20080901
  7. PREDNISOLONE [Suspect]
     Dosage: REDUCED TO 7.5 MG ON 12-SEP-2008
     Route: 048
  8. PREDNISOLONE [Suspect]
     Dosage: REDUCED TO 5 MG/DAY ON AN UNSPECIFIED DATE IN SEP-2008TO AN UNSPECIFIED DATE
     Route: 048
  9. PREDNISOLONE [Suspect]
     Route: 048
     Dates: start: 20081101
  10. ISCOTIN [Suspect]
     Indication: ANTIBIOTIC PROPHYLAXIS
     Route: 048
     Dates: start: 20080801

REACTIONS (4)
  - CYSTITIS [None]
  - ENTEROBACTER INFECTION [None]
  - MASS [None]
  - URACHAL ABNORMALITY [None]
